FAERS Safety Report 5834950-6 (Version None)
Quarter: 2008Q3

REPORT INFORMATION
  Report Type: 
  Country: None (occurrence: None)
  Receive Date: 20080806
  Receipt Date: 20080730
  Transmission Date: 20090109
  Serious: Yes (Other)
  Sender: FDA-Public Use
  Company Number: US-JNJFOC-20080707444

PATIENT
  Sex: Male

DRUGS (3)
  1. TYLENOL (CAPLET) [Interacting]
  2. TYLENOL (CAPLET) [Interacting]
     Indication: DRUG USE FOR UNKNOWN INDICATION
  3. ALTACE [Suspect]
     Indication: DRUG USE FOR UNKNOWN INDICATION

REACTIONS (2)
  - ANGIOEDEMA [None]
  - DRUG INTERACTION [None]
